FAERS Safety Report 8587630-0 (Version None)
Quarter: 2012Q3

REPORT INFORMATION
  Report Type: 
  Country: None (occurrence: None)
  Receive Date: 20120811
  Receipt Date: 20120806
  Transmission Date: 20120928
  Serious: Yes (Other)
  Sender: FDA-Public Use
  Company Number: JP-VERTEX PHARMACEUTICALS INC.-AE-2012-011825

PATIENT
  Age: 64 Year
  Sex: Male

DRUGS (9)
  1. PROMAC [Concomitant]
     Route: 048
     Dates: end: 20120706
  2. TELAVIC (TELAPREVIR) [Suspect]
     Indication: HEPATITIS C
     Route: 048
     Dates: start: 20120612, end: 20120706
  3. CELEBREX [Concomitant]
     Route: 048
  4. RIBAVIRIN [Concomitant]
     Indication: HEPATITIS C
     Route: 048
     Dates: start: 20120612, end: 20120706
  5. ALDACTONE [Concomitant]
     Route: 048
  6. LANSOPRAZOLE [Concomitant]
     Route: 048
  7. TSUMURA JUZENTAIHOTO EXTRACT GRANULES FOR ETHICAL USE [Concomitant]
     Route: 048
     Dates: end: 20120706
  8. BUFFERIN [Concomitant]
  9. PEGINTERFERON ALFA-2B [Concomitant]
     Indication: HEPATITIS C
     Route: 058
     Dates: start: 20120612, end: 20120706

REACTIONS (2)
  - RENAL DISORDER [None]
  - LIVER DISORDER [None]
